FAERS Safety Report 18953252 (Version 1)
Quarter: 2021Q1

REPORT INFORMATION
  Report Type: Spontaneous
  Country: US (occurrence: US)
  Receive Date: 20210228
  Receipt Date: 20210228
  Transmission Date: 20210420
  Serious: Yes (Hospitalization, Disabling, Other)
  Sender: FDA-Public Use
  Company Number: None

PATIENT
  Age: 27 Year
  Sex: Female
  Weight: 80.55 kg

DRUGS (9)
  1. NORETHINDRONE AND ESTRADIOL [Concomitant]
  2. KIRKLAND ORGANIC MULTIVITAMIN [Concomitant]
  3. VIRTUS (PROGESTERONE) [Suspect]
     Active Substance: PROGESTERONE
     Indication: SWYER SYNDROME
     Dosage: ?          QUANTITY:7 CAPSULE(S);?
     Route: 048
     Dates: start: 20200204, end: 20200605
  4. KIRKLAND EXTRA STRENGTH D3 [Concomitant]
  5. VENLAFAXINE [Concomitant]
     Active Substance: VENLAFAXINE HYDROCHLORIDE
  6. HYDROXZINE PAMOATE [Concomitant]
  7. RENEW LIFE WOMEN^S CARE PROBIOTIC [Concomitant]
  8. SERALAX ADVANCE MOOD ENHANCEMENT [Concomitant]
  9. MEDROXYPROGESTERONE [Suspect]
     Active Substance: MEDROXYPROGESTERONE
     Indication: SWYER SYNDROME
     Dosage: ?          QUANTITY:7 CAPSULE(S);?
     Route: 048

REACTIONS (6)
  - Major depression [None]
  - Fatigue [None]
  - Tachycardia [None]
  - Homicidal ideation [None]
  - Anxiety [None]
  - Obsessive-compulsive disorder [None]

NARRATIVE: CASE EVENT DATE: 20200702
